FAERS Safety Report 17038682 (Version 1)
Quarter: 2019Q4

REPORT INFORMATION
  Report Type: Report from Study
  Country: NL (occurrence: NL)
  Receive Date: 20191115
  Receipt Date: 20191115
  Transmission Date: 20200122
  Serious: Yes (Other)
  Sender: FDA-Public Use
  Company Number: PHHY2015NL108905

PATIENT
  Age: 47 Year
  Sex: Female

DRUGS (1)
  1. GILENYA [Suspect]
     Active Substance: FINGOLIMOD HYDROCHLORIDE
     Indication: MULTIPLE SCLEROSIS
     Dosage: UNK, QD
     Route: 048
     Dates: start: 20141106

REACTIONS (10)
  - Epidermolysis bullosa [Recovered/Resolved]
  - Aspartate aminotransferase increased [Recovered/Resolved]
  - Fall [Unknown]
  - Restless legs syndrome [Recovered/Resolved]
  - Cystitis [Recovered/Resolved]
  - Tooth infection [Recovered/Resolved]
  - Alanine aminotransferase increased [Recovered/Resolved]
  - Lymphocyte count decreased [Unknown]
  - White blood cell count decreased [Unknown]
  - Herpes simplex [Recovered/Resolved]

NARRATIVE: CASE EVENT DATE: 20141121
